FAERS Safety Report 8083035-X (Version None)
Quarter: 2012Q1

REPORT INFORMATION
  Report Type: 
  Country: None (occurrence: None)
  Receive Date: 20120127
  Receipt Date: 20110302
  Transmission Date: 20120608
  Serious: No
  Sender: FDA-Public Use
  Company Number: US-ABBOTT-11P-163-0708601-00

PATIENT
  Age: 25 Year
  Sex: Female

DRUGS (2)
  1. HUMIRA [Suspect]
     Indication: PSORIASIS
     Dates: start: 20090101
  2. UNKNOWN CREAM MEDICATION [Concomitant]
     Indication: PSORIASIS

REACTIONS (4)
  - INJECTION SITE PAIN [None]
  - NASOPHARYNGITIS [None]
  - DRUG EFFECT DECREASED [None]
  - PSORIASIS [None]
